FAERS Safety Report 24363902 (Version 1)
Quarter: 2024Q3

REPORT INFORMATION
  Report Type: Spontaneous
  Country: US (occurrence: US)
  Receive Date: 20240925
  Receipt Date: 20240925
  Transmission Date: 20241017
  Serious: No
  Sender: MYLAN
  Company Number: US-MYLANLABS-2024M1084337

PATIENT
  Age: 35 Year
  Sex: Female

DRUGS (1)
  1. ESTRADIOL TRANSDERMAL SYSTEM [Suspect]
     Active Substance: ESTRADIOL
     Indication: Hormone replacement therapy
     Dosage: 0.025 MILLIGRAM
     Route: 062

REACTIONS (4)
  - Application site pain [Unknown]
  - Application site urticaria [Unknown]
  - Application site erythema [Unknown]
  - Application site pruritus [Unknown]
